FAERS Safety Report 8200547-6 (Version None)
Quarter: 2012Q1

REPORT INFORMATION
  Report Type: 
  Country: None (occurrence: None)
  Receive Date: 20120302
  Receipt Date: 20120224
  Transmission Date: 20120608
  Serious: Yes (Other)
  Sender: FDA-Public Use
  Company Number: 2012030928

PATIENT
  Sex: Male
  Weight: 73.4827 kg

DRUGS (11)
  1. ZEMAIRA [Suspect]
     Indication: ALPHA-1 ANTI-TRYPSIN DEFICIENCY
     Dosage: SEE IMAGE
     Route: 042
     Dates: start: 20100101
  2. ZEMAIRA [Suspect]
     Indication: ALPHA-1 ANTI-TRYPSIN DEFICIENCY
     Dosage: SEE IMAGE
     Route: 042
     Dates: start: 20100101
  3. ZYRTEC [Concomitant]
  4. SINGULAIR [Concomitant]
  5. SODIUM CHLORIDE 0.9% [Concomitant]
  6. PREDNISONE TAB [Concomitant]
  7. FLOVENT [Concomitant]
  8. SPIRIVA [Concomitant]
  9. NASACORT [Concomitant]
  10. ZEMAIRA [Suspect]
  11. LEVAQUIN [Concomitant]

REACTIONS (4)
  - RESPIRATORY TRACT CONGESTION [None]
  - ASTHMA [None]
  - OXYGEN SATURATION DECREASED [None]
  - CHEST PAIN [None]
